FAERS Safety Report 12049298 (Version 1)
Quarter: 2016Q1

REPORT INFORMATION
  Report Type: Spontaneous
  Country: US (occurrence: None)
  Receive Date: 20160208
  Receipt Date: 20160208
  Transmission Date: 20160526
  Serious: Yes (Other)
  Sender: FDA-Public Use
  Company Number: None

PATIENT
  Age: 69 Year
  Sex: Male
  Weight: 68.04 kg

DRUGS (3)
  1. BENDAMUSTINE [Suspect]
     Active Substance: BENDAMUSTINE
     Indication: NON-HODGKIN^S LYMPHOMA
     Dosage: 4 MONTHLY SESSIONS INTO A VEIN
     Route: 042
     Dates: start: 20140805, end: 20141104
  2. VITAMIN D [Concomitant]
     Active Substance: CHOLECALCIFEROL
  3. ANTIHISTAMINE [Concomitant]
     Active Substance: UNSPECIFIED INGREDIENT

REACTIONS (5)
  - Injection site swelling [None]
  - Injection site induration [None]
  - Vein collapse [None]
  - Injection site discolouration [None]
  - Injection site erythema [None]

NARRATIVE: CASE EVENT DATE: 20140902
